FAERS Safety Report 10565660 (Version 3)
Quarter: 2015Q1

REPORT INFORMATION
  Report Type: Report from Study
  Country: NZ (occurrence: NZ)
  Receive Date: 20141105
  Receipt Date: 20150327
  Transmission Date: 20150720
  Serious: Yes (Death, Other)
  Sender: FDA-Public Use
  Company Number: PHHY2014NZ143597

PATIENT
  Age: 68 Year
  Sex: Male

DRUGS (4)
  1. PARACETAMOL [Concomitant]
     Active Substance: ACETAMINOPHEN
     Indication: PRODUCT USED FOR UNKNOWN INDICATION
     Route: 065
  2. CLOZARIL [Suspect]
     Active Substance: CLOZAPINE
     Indication: SCHIZOPHRENIA
     Dosage: 100 MG, UNK
     Route: 048
     Dates: start: 20060728
  3. CALCIFEROL [Concomitant]
     Active Substance: ERGOCALCIFEROL
     Indication: PRODUCT USED FOR UNKNOWN INDICATION
     Route: 065
  4. SODIUM VALPROATE [Concomitant]
     Active Substance: VALPROATE SODIUM
     Indication: PRODUCT USED FOR UNKNOWN INDICATION
     Dosage: 950 MG, UNK
     Route: 065

REACTIONS (8)
  - Choking [Fatal]
  - Cognitive disorder [Unknown]
  - Psychotic disorder [Unknown]
  - Mental status changes [Unknown]
  - Delusion [Unknown]
  - Abnormal behaviour [Unknown]
  - Aggression [Unknown]
  - Sudden death [Fatal]

NARRATIVE: CASE EVENT DATE: 20141102
